FAERS Safety Report 9680907 (Version 2)
Quarter: 2017Q3

REPORT INFORMATION
  Report Type: Spontaneous
  Country: NL (occurrence: NL)
  Receive Date: 20131111
  Receipt Date: 20170907
  Transmission Date: 20171128
  Serious: Yes (Hospitalization, Other)
  Sender: FDA-Public Use
  Company Number: NL-ASTELLAS-2013EU009711

PATIENT
  Age: 59 Year
  Sex: Female

DRUGS (1)
  1. TACROLIMUS. [Suspect]
     Active Substance: TACROLIMUS
     Indication: RENAL TRANSPLANT
     Dosage: UNK UNK, UNKNOWN FREQ.
     Route: 065

REACTIONS (8)
  - Laparotomy [Unknown]
  - Surgery [Unknown]
  - Intestinal resection [Unknown]
  - Peritonitis [Unknown]
  - Ascites [Unknown]
  - Encapsulating peritoneal sclerosis [Recovered/Resolved]
  - Ileostomy [Unknown]
  - Intestinal perforation [Recovered/Resolved]
